FAERS Safety Report 12643799 (Version 1)
Quarter: 2016Q3

REPORT INFORMATION
  Report Type: Spontaneous
  Country: DE (occurrence: DE)
  Receive Date: 20160811
  Receipt Date: 20160811
  Transmission Date: 20161109
  Serious: Yes (Other)
  Sender: FDA-Public Use
  Company Number: DE-SA-2016SA145299

PATIENT
  Age: 28 Year
  Sex: Male

DRUGS (2)
  1. ALEMTUZUMAB [Suspect]
     Active Substance: ALEMTUZUMAB
     Indication: RELAPSING-REMITTING MULTIPLE SCLEROSIS
     Route: 065
     Dates: start: 201508, end: 201508
  2. ALEMTUZUMAB [Suspect]
     Active Substance: ALEMTUZUMAB
     Indication: RELAPSING-REMITTING MULTIPLE SCLEROSIS
     Route: 065
     Dates: start: 201408, end: 201408

REACTIONS (5)
  - Immune thrombocytopenic purpura [Unknown]
  - Blood thyroid stimulating hormone increased [Unknown]
  - Autoimmune thyroiditis [Unknown]
  - Anti-thyroid antibody positive [Unknown]
  - Thyroid stimulating immunoglobulin [Unknown]

NARRATIVE: CASE EVENT DATE: 201505
